FAERS Safety Report 9638828 (Version 1)
Quarter: 2013Q4

REPORT INFORMATION
  Report Type: Spontaneous
  Country: US (occurrence: US)
  Receive Date: 20131022
  Receipt Date: 20131022
  Transmission Date: 20140711
  Serious: No
  Sender: FDA-Public Use
  Company Number: US-BRISTOL-MYERS SQUIBB COMPANY-19158880

PATIENT
  Age: 71 Year
  Sex: Male

DRUGS (5)
  1. ELIQUIS [Suspect]
  2. ENALAPRIL [Concomitant]
  3. FUROSEMIDE [Concomitant]
  4. DIGOXIN [Concomitant]
  5. LEVOTHYROXIN [Concomitant]

REACTIONS (5)
  - Dyspnoea [Unknown]
  - Dry throat [Unknown]
  - Sputum discoloured [Recovered/Resolved]
  - Increased viscosity of bronchial secretion [Unknown]
  - Swollen tongue [Unknown]
